FAERS Safety Report 20153992 (Version 1)
Quarter: 2021Q4

REPORT INFORMATION
  Report Type: Spontaneous
  Country: US (occurrence: None)
  Receive Date: 20211207
  Receipt Date: 20211207
  Transmission Date: 20220304
  Serious: Yes (Hospitalization, Other)
  Sender: FDA-Public Use
  Company Number: US-MLMSERVICE-20211117-3224051-1

PATIENT
  Age: 50 Year
  Sex: Female

DRUGS (10)
  1. ETOPOSIDE [Suspect]
     Active Substance: ETOPOSIDE
     Indication: Choriocarcinoma
     Dosage: UNKNOWN
     Route: 065
  2. ETOPOSIDE [Suspect]
     Active Substance: ETOPOSIDE
     Indication: Gestational trophoblastic tumour
  3. CYCLOPHOSPHAMIDE [Suspect]
     Active Substance: CYCLOPHOSPHAMIDE
     Indication: Choriocarcinoma
     Dosage: UNKNOWN
     Route: 065
  4. CYCLOPHOSPHAMIDE [Suspect]
     Active Substance: CYCLOPHOSPHAMIDE
     Indication: Gestational trophoblastic tumour
  5. METHOTREXATE [Suspect]
     Active Substance: METHOTREXATE
     Indication: Choriocarcinoma
     Dosage: UNKNOWN
     Route: 065
  6. METHOTREXATE [Suspect]
     Active Substance: METHOTREXATE
     Indication: Gestational trophoblastic tumour
  7. ACTINOMYCIN D [Suspect]
     Active Substance: DACTINOMYCIN
     Indication: Gestational trophoblastic tumour
     Dosage: UNKNOWN
     Route: 065
  8. ACTINOMYCIN D [Suspect]
     Active Substance: DACTINOMYCIN
     Indication: Choriocarcinoma
  9. VINCRISTINE [Suspect]
     Active Substance: VINCRISTINE
     Indication: Choriocarcinoma
     Dosage: UNKNOWN
     Route: 065
  10. VINCRISTINE [Suspect]
     Active Substance: VINCRISTINE
     Indication: Gestational trophoblastic tumour

REACTIONS (2)
  - Depression [Unknown]
  - Nausea [Unknown]
